FAERS Safety Report 16256047 (Version 1)
Quarter: 2019Q2

REPORT INFORMATION
  Report Type: Spontaneous
  Country: US (occurrence: US)
  Receive Date: 20190430
  Receipt Date: 20190430
  Transmission Date: 20190711
  Serious: No
  Sender: FDA-Public Use
  Company Number: US-PFIZER INC-2019183551

PATIENT
  Age: 75 Year
  Sex: Male

DRUGS (6)
  1. PRAVASTATIN. [Suspect]
     Active Substance: PRAVASTATIN
     Dosage: 20 MG, UNK
  2. LOSARTAN. [Suspect]
     Active Substance: LOSARTAN
     Dosage: 50 MG, UNK
  3. GLUCOSAMINE + CHONDROITIN COMPLEX [Suspect]
     Active Substance: CHONDROITIN SULFATE (BOVINE)\GLUCOSAMINE HYDROCHLORIDE
     Dosage: UNK
  4. LYRICA [Suspect]
     Active Substance: PREGABALIN
     Dosage: 150 MG, 2X/DAY
     Route: 048
  5. ASPIRIN 81 [Suspect]
     Active Substance: ASPIRIN
     Dosage: 81 MG, UNK
  6. PLAVIX [Suspect]
     Active Substance: CLOPIDOGREL BISULFATE
     Dosage: 75 MG, UNK

REACTIONS (1)
  - Drug hypersensitivity [Unknown]
